FAERS Safety Report 15138350 (Version 1)
Quarter: 2018Q3

REPORT INFORMATION
  Report Type: Report from Study
  Country: None (occurrence: IT)
  Receive Date: 20180713
  Receipt Date: 20180713
  Transmission Date: 20181010
  Serious: Yes (Death)
  Sender: FDA-Public Use
  Company Number: IT-ABBVIE-18S-083-2414029-00

PATIENT
  Sex: Female

DRUGS (1)
  1. DUODOPA [Suspect]
     Active Substance: CARBIDOPA\LEVODOPA
     Indication: PARKINSON^S DISEASE
     Dosage: MD: 11,5+3?CR: 4,4?ED: 4
     Route: 050
     Dates: start: 20150923, end: 20180704

REACTIONS (1)
  - Metastatic neoplasm [Fatal]
